FAERS Safety Report 22061762 (Version 1)
Quarter: 2023Q1

REPORT INFORMATION
  Report Type: Report from Study
  Country: CO (occurrence: CO)
  Receive Date: 20230304
  Receipt Date: 20230304
  Transmission Date: 20230417
  Serious: Yes (Other)
  Sender: FDA-Public Use
  Company Number: CO-ABBVIE-22K-036-4492875-00

PATIENT
  Sex: Female
  Weight: 65 kg

DRUGS (2)
  1. HUMIRA [Suspect]
     Active Substance: ADALIMUMAB
     Indication: Hidradenitis
     Route: 058
     Dates: start: 20210226, end: 20221007
  2. NEBIVOLOL [Concomitant]
     Active Substance: NEBIVOLOL
     Indication: Cardiac disorder
     Dosage: 1 TABLET
     Route: 048
     Dates: start: 2022

REACTIONS (6)
  - Inflammation [Recovering/Resolving]
  - Wound infection bacterial [Recovering/Resolving]
  - Wound haemorrhage [Unknown]
  - Axillary pain [Recovering/Resolving]
  - Subcutaneous abscess [Not Recovered/Not Resolved]
  - Abscess [Not Recovered/Not Resolved]

NARRATIVE: CASE EVENT DATE: 20220101
